FAERS Safety Report 11365859 (Version 2)
Quarter: 2015Q3

REPORT INFORMATION
  Report Type: Spontaneous
  Country: UA (occurrence: UA)
  Receive Date: 20150811
  Receipt Date: 20150818
  Transmission Date: 20151125
  Serious: Yes (Hospitalization)
  Sender: FDA-Public Use
  Company Number: UA-ASTRAZENECA-2015SE76681

PATIENT
  Age: 67 Year
  Sex: Male
  Weight: 90 kg

DRUGS (11)
  1. DETRALEX [Concomitant]
     Active Substance: DIOSMIN\HESPERIDIN
  2. CRESTOR [Suspect]
     Active Substance: ROSUVASTATIN CALCIUM
     Indication: CORONARY ARTERY DISEASE
     Route: 048
     Dates: end: 20150806
  3. CRESTOR [Suspect]
     Active Substance: ROSUVASTATIN CALCIUM
     Indication: ARTERIOSCLEROSIS
     Route: 048
     Dates: end: 20150806
  4. XARELTO [Suspect]
     Active Substance: RIVAROXABAN
     Route: 048
  5. BRILINTA [Suspect]
     Active Substance: TICAGRELOR
     Indication: STENT PLACEMENT
     Route: 048
  6. PLAVIX [Concomitant]
     Active Substance: CLOPIDOGREL BISULFATE
  7. HYPOGLYCEMIC AGENTS [Concomitant]
  8. BRILINTA [Suspect]
     Active Substance: TICAGRELOR
     Indication: PERIPHERAL ARTERY THROMBOSIS
     Route: 048
  9. KALYMIN [Concomitant]
  10. CRESTOR [Suspect]
     Active Substance: ROSUVASTATIN CALCIUM
     Indication: ANGINA PECTORIS
     Route: 048
     Dates: end: 20150806
  11. LERKAMEN [Concomitant]

REACTIONS (4)
  - Dysphagia [Recovering/Resolving]
  - Dyspnoea [Unknown]
  - Myasthenic syndrome [Recovering/Resolving]
  - Asthenia [Recovering/Resolving]
